FAERS Safety Report 12077898 (Version 1)
Quarter: 2016Q1

REPORT INFORMATION
  Report Type: Spontaneous
  Country: OM (occurrence: OM)
  Receive Date: 20160215
  Receipt Date: 20160215
  Transmission Date: 20160526
  Serious: Yes (Other)
  Sender: FDA-Public Use
  Company Number: OM-CORDEN PHARMA LATINA S.P.A.-OM-2016COR000051

PATIENT
  Sex: Female

DRUGS (3)
  1. CYCLOSPORINE. [Suspect]
     Active Substance: CYCLOSPORINE
     Indication: HISTIOCYTOSIS HAEMATOPHAGIC
     Dosage: 1.5 MG/KG, BID
  2. DEXAMETHASONE. [Suspect]
     Active Substance: DEXAMETHASONE
     Indication: HISTIOCYTOSIS HAEMATOPHAGIC
     Dosage: 10 MG/M2, DAILY
  3. ETOPOSIDE. [Suspect]
     Active Substance: ETOPOSIDE
     Indication: HISTIOCYTOSIS HAEMATOPHAGIC
     Dosage: 150 MG/M2, TWICE WEEKLY

REACTIONS (7)
  - Hypertension [Unknown]
  - Left ventricular hypertrophy [Unknown]
  - Hypertrophic cardiomyopathy [Unknown]
  - Mitral valve incompetence [Unknown]
  - Systolic anterior motion of mitral valve [Unknown]
  - Cardiac murmur [Unknown]
  - Left ventricle outflow tract obstruction [Unknown]
